FAERS Safety Report 16991213 (Version 1)
Quarter: 2019Q4

REPORT INFORMATION
  Report Type: Spontaneous
  Country: US (occurrence: US)
  Receive Date: 20190920
  Receipt Date: 20190920
  Transmission Date: 20200122
  Serious: No
  Sender: FDA-Public Use
  Company Number: None

PATIENT
  Age: 66 Year
  Sex: Male

DRUGS (7)
  1. ESCITALOPRAM [Concomitant]
     Active Substance: ESCITALOPRAM OXALATE
  2. OXYCODONE [Concomitant]
     Active Substance: OXYCODONE
  3. CAPECITABINE, 500 MG [Suspect]
     Active Substance: CAPECITABINE
     Indication: CARCINOID TUMOUR
     Route: 048
     Dates: start: 20190713
  4. FENTANYL. [Concomitant]
     Active Substance: FENTANYL
  5. GABAPENTIN. [Concomitant]
     Active Substance: GABAPENTIN
  6. DICYCLOMINE [Suspect]
     Active Substance: DICYCLOMINE HYDROCHLORIDE
  7. TAMSULOSIN [Concomitant]
     Active Substance: TAMSULOSIN

REACTIONS (1)
  - Emergency care [None]

NARRATIVE: CASE EVENT DATE: 20190919
